FAERS Safety Report 13889902 (Version 1)
Quarter: 2017Q3

REPORT INFORMATION
  Report Type: Spontaneous
  Country: FR (occurrence: FR)
  Receive Date: 20170822
  Receipt Date: 20170822
  Transmission Date: 20171127
  Serious: No
  Sender: FDA-Public Use
  Company Number: FR-LUPIN PHARMACEUTICALS INC.-2017-03958

PATIENT
  Age: 46 Year
  Sex: Female

DRUGS (7)
  1. IMATINIB [Concomitant]
     Active Substance: IMATINIB
     Indication: DESMOID TUMOUR
     Dosage: 400 MG, QD
     Route: 065
  2. BEVACIZUMAB. [Concomitant]
     Active Substance: BEVACIZUMAB
     Indication: DESMOID TUMOUR
     Dosage: FOUR INJECTIONS OF 5 MG BEVACIZUMAB PER KILOGRAM OF BODY WEIGHT EVERY 2 WEEKS
     Route: 065
  3. CELECOXIB. [Suspect]
     Active Substance: CELECOXIB
     Indication: NEOPLASM SKIN
     Dosage: 400 MG, QD
     Route: 065
  4. SORAFENIB [Suspect]
     Active Substance: SORAFENIB
     Indication: DESMOID TUMOUR
     Dosage: 600 MG, QD
     Route: 065
     Dates: start: 201401, end: 201704
  5. CELECOXIB. [Suspect]
     Active Substance: CELECOXIB
     Indication: DESMOID TUMOUR
     Dosage: 400 MG, QD
     Route: 065
     Dates: start: 201401, end: 201704
  6. SORAFENIB [Suspect]
     Active Substance: SORAFENIB
     Indication: NEOPLASM SKIN
     Dosage: 600 MG, QD
     Route: 065
  7. IMATINIB [Concomitant]
     Active Substance: IMATINIB
     Dosage: 800 MG, QD
     Route: 065

REACTIONS (1)
  - Skin toxicity [Unknown]
